FAERS Safety Report 4549575-2 (Version None)
Quarter: 2005Q1

REPORT INFORMATION
  Report Type: 
  Country: None (occurrence: None)
  Receive Date: 20050111
  Receipt Date: 20050104
  Transmission Date: 20050727
  Serious: Yes (Hospitalization)
  Sender: FDA-Public Use
  Company Number: US-MERCK-0501USA00349

PATIENT
  Age: 65 Year
  Sex: Female

DRUGS (2)
  1. VIOXX [Suspect]
     Indication: ARTHRITIS
     Route: 048
     Dates: start: 20040701, end: 20040930
  2. VIOXX [Suspect]
     Indication: HIP ARTHROPLASTY
     Route: 048
     Dates: start: 20040701, end: 20040930

REACTIONS (8)
  - ADVERSE EVENT [None]
  - BLOOD PRESSURE INCREASED [None]
  - BLOOD PRESSURE SYSTOLIC INCREASED [None]
  - DYSURIA [None]
  - FLUID RETENTION [None]
  - HEADACHE [None]
  - JOINT SWELLING [None]
  - URINARY RETENTION [None]
